APPROVED DRUG PRODUCT: E-Z SCRUB
Active Ingredient: CHLORHEXIDINE GLUCONATE
Strength: 4%
Dosage Form/Route: SPONGE;TOPICAL
Application: A073416 | Product #001
Applicant: BECTON DICKINSON SURGICAL SYSTEM
Approved: Mar 14, 2000 | RLD: No | RS: No | Type: DISCN